FAERS Safety Report 6407927-X (Version None)
Quarter: 2009Q4

REPORT INFORMATION
  Report Type: 
  Country: None (occurrence: None)
  Receive Date: 20091016
  Receipt Date: 20090921
  Transmission Date: 20100525
  Serious: Yes (Death)
  Sender: FDA-Public Use
  Company Number: 09-12-00237

PATIENT
  Age: 50 Year
  Sex: Male

DRUGS (7)
  1. LEUCOVORIN CALCIUM [Suspect]
  2. IMC-1121B (ANTI-VEGFR2 MAB) [Suspect]
     Indication: COLORECTAL CANCER METASTATIC
     Dosage: 712 MG
     Route: 042
     Dates: start: 20090518, end: 20090902
  3. OXALIPLATIN [Suspect]
     Indication: COLORECTAL CANCER METASTATIC
     Dosage: 181 MG
     Route: 042
     Dates: start: 20090518, end: 20090902
  4. FLUOROURACIL [Suspect]
     Indication: COLORECTAL CANCER METASTATIC
     Dosage: 5951 MG
     Route: 042
     Dates: start: 20090518, end: 20090902
  5. LEUCOVORIN CALCIUM [Suspect]
     Indication: COLORECTAL CANCER METASTATIC
     Dosage: 851 MG
     Route: 042
     Dates: start: 20090518, end: 20090902
  6. ATENOLOL [Concomitant]
  7. OMEPRAZOLE [Concomitant]

REACTIONS (2)
  - ACUTE MYOCARDIAL INFARCTION [None]
  - SUDDEN DEATH [None]
